FAERS Safety Report 17829902 (Version 2)
Quarter: 2020Q2

REPORT INFORMATION
  Report Type: Spontaneous
  Country: JP (occurrence: JP)
  Receive Date: 20200527
  Receipt Date: 20200603
  Transmission Date: 20200714
  Serious: Yes (Hospitalization)
  Sender: FDA-Public Use
  Company Number: JP-EISAI MEDICAL RESEARCH-EC-2020-074867

PATIENT
  Age: 70 Year
  Sex: Female

DRUGS (4)
  1. PERAMPANEL [Suspect]
     Active Substance: PERAMPANEL
     Route: 048
  2. PERAMPANEL [Suspect]
     Active Substance: PERAMPANEL
     Indication: STATUS EPILEPTICUS
     Route: 048
  3. LEVETIRACETAM. [Concomitant]
     Active Substance: LEVETIRACETAM
     Route: 065
  4. LEVETIRACETAM. [Concomitant]
     Active Substance: LEVETIRACETAM
     Indication: STATUS EPILEPTICUS
     Route: 065

REACTIONS (2)
  - Personality change [Recovered/Resolved]
  - Muscular weakness [Recovered/Resolved]
